FAERS Safety Report 19809206 (Version 2)
Quarter: 2021Q4

REPORT INFORMATION
  Report Type: Spontaneous
  Country: SG (occurrence: SG)
  Receive Date: 20210908
  Receipt Date: 20211228
  Transmission Date: 20220303
  Serious: Yes (Hospitalization, Other)
  Sender: FDA-Public Use
  Company Number: SG-TAKEDA-2021TUS054147

PATIENT
  Age: 6 Month
  Sex: Male

DRUGS (21)
  1. ANTIHEMOPHILIC FACTOR, HUMAN RECOMBINANT [Suspect]
     Active Substance: ANTIHEMOPHILIC FACTOR, HUMAN RECOMBINANT
     Indication: Factor VIII deficiency
     Dosage: 50 INTERNATIONAL UNIT/KILOGRAM, QD
     Route: 065
  2. ANTIHEMOPHILIC FACTOR, HUMAN RECOMBINANT [Suspect]
     Active Substance: ANTIHEMOPHILIC FACTOR, HUMAN RECOMBINANT
     Indication: Factor VIII deficiency
     Dosage: 50 INTERNATIONAL UNIT/KILOGRAM, QD
     Route: 065
  3. ANTIHEMOPHILIC FACTOR, HUMAN RECOMBINANT [Suspect]
     Active Substance: ANTIHEMOPHILIC FACTOR, HUMAN RECOMBINANT
     Indication: Factor VIII deficiency
     Dosage: 50 INTERNATIONAL UNIT/KILOGRAM, QD
     Route: 065
  4. ANTIHEMOPHILIC FACTOR, HUMAN RECOMBINANT [Suspect]
     Active Substance: ANTIHEMOPHILIC FACTOR, HUMAN RECOMBINANT
     Dosage: 50 INTERNATIONAL UNIT/KILOGRAM, Q8HR
     Route: 065
  5. ANTIHEMOPHILIC FACTOR, HUMAN RECOMBINANT [Suspect]
     Active Substance: ANTIHEMOPHILIC FACTOR, HUMAN RECOMBINANT
     Dosage: 50 INTERNATIONAL UNIT/KILOGRAM, Q8HR
     Route: 065
  6. ANTIHEMOPHILIC FACTOR, HUMAN RECOMBINANT [Suspect]
     Active Substance: ANTIHEMOPHILIC FACTOR, HUMAN RECOMBINANT
     Dosage: 50 INTERNATIONAL UNIT/KILOGRAM, Q8HR
     Route: 065
  7. ANTIHEMOPHILIC FACTOR, HUMAN RECOMBINANT [Suspect]
     Active Substance: ANTIHEMOPHILIC FACTOR, HUMAN RECOMBINANT
     Dosage: 50 INTERNATIONAL UNIT/KILOGRAM, 2/WEEK
     Route: 065
  8. ANTIHEMOPHILIC FACTOR, HUMAN RECOMBINANT [Suspect]
     Active Substance: ANTIHEMOPHILIC FACTOR, HUMAN RECOMBINANT
     Dosage: 50 INTERNATIONAL UNIT/KILOGRAM, 2/WEEK
     Route: 065
  9. ANTIHEMOPHILIC FACTOR, HUMAN RECOMBINANT [Suspect]
     Active Substance: ANTIHEMOPHILIC FACTOR, HUMAN RECOMBINANT
     Dosage: 50 INTERNATIONAL UNIT/KILOGRAM, 2/WEEK
     Route: 065
  10. ANTIHEMOPHILIC FACTOR, HUMAN RECOMBINANT [Suspect]
     Active Substance: ANTIHEMOPHILIC FACTOR, HUMAN RECOMBINANT
     Dosage: 75 INTERNATIONAL UNIT/KILOGRAM, Q8HR
     Route: 065
  11. ANTIHEMOPHILIC FACTOR, HUMAN RECOMBINANT [Suspect]
     Active Substance: ANTIHEMOPHILIC FACTOR, HUMAN RECOMBINANT
     Dosage: 75 INTERNATIONAL UNIT/KILOGRAM, Q8HR
     Route: 065
  12. ANTIHEMOPHILIC FACTOR, HUMAN RECOMBINANT [Suspect]
     Active Substance: ANTIHEMOPHILIC FACTOR, HUMAN RECOMBINANT
     Dosage: 75 INTERNATIONAL UNIT/KILOGRAM, Q8HR
     Route: 065
  13. ANTIHEMOPHILIC FACTOR, HUMAN RECOMBINANT [Suspect]
     Active Substance: ANTIHEMOPHILIC FACTOR, HUMAN RECOMBINANT
     Dosage: 40 INTERNATIONAL UNIT/KILOGRAM, 1/WEEK
     Route: 065
  14. ANTIHEMOPHILIC FACTOR, HUMAN RECOMBINANT [Suspect]
     Active Substance: ANTIHEMOPHILIC FACTOR, HUMAN RECOMBINANT
     Dosage: 40 INTERNATIONAL UNIT/KILOGRAM, 1/WEEK
     Route: 065
  15. ANTIHEMOPHILIC FACTOR, HUMAN RECOMBINANT [Suspect]
     Active Substance: ANTIHEMOPHILIC FACTOR, HUMAN RECOMBINANT
     Dosage: 40 INTERNATIONAL UNIT/KILOGRAM, 1/WEEK
     Route: 065
  16. ANTIHEMOPHILIC FACTOR, HUMAN RECOMBINANT [Suspect]
     Active Substance: ANTIHEMOPHILIC FACTOR, HUMAN RECOMBINANT
     Dosage: 50 INTERNATIONAL UNIT/KILOGRAM, 3/WEEK
     Route: 065
  17. ANTIHEMOPHILIC FACTOR, HUMAN RECOMBINANT [Suspect]
     Active Substance: ANTIHEMOPHILIC FACTOR, HUMAN RECOMBINANT
     Dosage: 50 INTERNATIONAL UNIT/KILOGRAM, 3/WEEK
     Route: 065
  18. ANTIHEMOPHILIC FACTOR, HUMAN RECOMBINANT [Suspect]
     Active Substance: ANTIHEMOPHILIC FACTOR, HUMAN RECOMBINANT
     Dosage: 50 INTERNATIONAL UNIT/KILOGRAM, 3/WEEK
     Route: 065
  19. EMICIZUMAB [Concomitant]
     Active Substance: EMICIZUMAB
     Indication: Prophylaxis
     Dosage: 3 MILLIGRAM/KILOGRAM, 1/WEEK
     Route: 065
  20. EMICIZUMAB [Concomitant]
     Active Substance: EMICIZUMAB
     Dosage: 3 MILLIGRAM/KILOGRAM, Q2WEEKS
     Route: 065
  21. PHENOBARBITAL [Concomitant]
     Active Substance: PHENOBARBITAL
     Indication: Epilepsy
     Dosage: UNK
     Route: 065

REACTIONS (5)
  - Anti factor VIII antibody positive [Recovered/Resolved]
  - Subdural haemorrhage [Recovered/Resolved]
  - Haematoma [Recovered/Resolved]
  - Drug ineffective [Unknown]
  - Underdose [Recovered/Resolved]
